FAERS Safety Report 11229935 (Version 6)
Quarter: 2017Q2

REPORT INFORMATION
  Report Type: Spontaneous
  Country: MY (occurrence: MY)
  Receive Date: 20150701
  Receipt Date: 20170602
  Transmission Date: 20170829
  Serious: Yes (Life-Threatening, Other)
  Sender: FDA-Public Use
  Company Number: MY-AMGEN-MYSSP2015063548

PATIENT
  Age: 61 Year
  Sex: Male
  Weight: 56 kg

DRUGS (9)
  1. CORALAN [Suspect]
     Active Substance: IVABRADINE HYDROCHLORIDE
     Indication: CARDIAC FAILURE
     Dosage: 3.75 MG, BID
     Route: 048
     Dates: start: 20150615, end: 20150616
  2. PERINDOPRIL [Concomitant]
     Active Substance: PERINDOPRIL
     Dosage: 5 MG, QD
     Route: 048
     Dates: start: 20150622
  3. ACETYLSALICYLIC ACID [Concomitant]
     Active Substance: ASPIRIN
     Indication: PERCUTANEOUS CORONARY INTERVENTION
  4. CORALAN [Suspect]
     Active Substance: IVABRADINE HYDROCHLORIDE
     Dosage: 7.5 MG IN THE MORNING, 3.75 MG IN THE EVENING
     Route: 048
     Dates: start: 20150616, end: 20150622
  5. ACETYLSALICYLIC ACID [Concomitant]
     Active Substance: ASPIRIN
     Indication: CEREBROVASCULAR ACCIDENT
     Dosage: 120 MG, QD
     Route: 048
     Dates: start: 20150614
  6. TICAGRELOR [Concomitant]
     Active Substance: TICAGRELOR
     Indication: CEREBROVASCULAR ACCIDENT
     Dosage: 120 MG, QD
     Route: 048
     Dates: start: 20150615
  7. SPIRONOLACTONE. [Concomitant]
     Active Substance: SPIRONOLACTONE
     Indication: CARDIAC FAILURE
     Dosage: 12.5 MG, QD
     Route: 048
     Dates: start: 20150619
  8. PERINDOPRIL [Concomitant]
     Active Substance: PERINDOPRIL
     Indication: CARDIAC FAILURE
     Dosage: 2.5 MG, QD
     Route: 048
     Dates: start: 20150618, end: 20150621
  9. TICAGRELOR [Concomitant]
     Active Substance: TICAGRELOR
     Indication: PERCUTANEOUS CORONARY INTERVENTION

REACTIONS (12)
  - Hypoglycaemia [Unknown]
  - Syncope [Recovered/Resolved]
  - Electrocardiogram QT prolonged [Not Recovered/Not Resolved]
  - Hypokalaemia [Recovered/Resolved]
  - Blood calcium decreased [Recovered/Resolved]
  - Torsade de pointes [Recovered/Resolved]
  - Acute coronary syndrome [Recovered/Resolved]
  - Myocardial infarction [Recovered/Resolved]
  - Product use issue [Recovered/Resolved]
  - Cardiac arrest [Recovered/Resolved]
  - Blood thyroid stimulating hormone decreased [Unknown]
  - Tri-iodothyronine decreased [Unknown]

NARRATIVE: CASE EVENT DATE: 20150615
